FAERS Safety Report 5129190-2 (Version None)
Quarter: 2006Q4

REPORT INFORMATION
  Report Type: 
  Country: None (occurrence: None)
  Receive Date: 20061011
  Receipt Date: 20060919
  Transmission Date: 20070319
  Serious: Yes (Life-Threatening, Other)
  Sender: FDA-Public Use
  Company Number: AR200609004933

PATIENT
  Age: 60 Year
  Sex: Female

DRUGS (3)
  1. HUMULIN N [Suspect]
     Indication: DIABETES MELLITUS
     Dosage: 56 IU DAILY (1/D), SUBCUTANEOUS
     Route: 058
     Dates: start: 19990919
  2. LORATADINE [Concomitant]
  3. METFORMIN HCL [Concomitant]

REACTIONS (6)
  - ANAPHYLACTIC SHOCK [None]
  - COLOSTOMY [None]
  - HEADACHE [None]
  - PHARMACEUTICAL PRODUCT COMPLAINT [None]
  - PYREXIA [None]
  - UNEVALUABLE EVENT [None]
